FAERS Safety Report 15831568 (Version 5)
Quarter: 2019Q4

REPORT INFORMATION
  Report Type: Spontaneous
  Country: JP (occurrence: JP)
  Receive Date: 20190116
  Receipt Date: 20191128
  Transmission Date: 20200122
  Serious: Yes (Death, Life-Threatening, Hospitalization, Other)
  Sender: FDA-Public Use
  Company Number: JP-009507513-1901JPN000433J

PATIENT
  Age: 59 Year
  Sex: Male
  Weight: 83 kg

DRUGS (6)
  1. KEYTRUDA [Suspect]
     Active Substance: PEMBROLIZUMAB
     Indication: TRANSITIONAL CELL CARCINOMA
     Dosage: 200 MILLIGRAM, Q3W
     Route: 041
     Dates: start: 20181210, end: 20181210
  2. SILECE [Concomitant]
     Active Substance: FLUNITRAZEPAM
     Indication: INSOMNIA
     Dosage: 1 DOSAGE FORM, QD,BEFORE SLEEP
     Route: 048
  3. DENOTAS [Concomitant]
     Active Substance: CALCIUM CARBONATE\CHOLECALCIFEROL\MAGNESIUM CARBONATE
     Indication: PROPHYLAXIS
     Dosage: 2 DOSAGE FORM, QD
     Route: 048
     Dates: start: 20180728
  4. YOUPIS [Concomitant]
     Indication: CONSTIPATION
     Dosage: UNK, PRN
     Route: 048
  5. RANMARK [Concomitant]
     Active Substance: DENOSUMAB
     Indication: METASTASES TO BONE
     Dosage: 120 MILLIGRAM, EVERY 4 WEEKS
     Route: 058
     Dates: start: 20180727
  6. LITHIUM CARBONATE. [Concomitant]
     Active Substance: LITHIUM CARBONATE
     Indication: BIPOLAR I DISORDER
     Dosage: 1 TAB/ MORNING, 2 TABL / EVENING
     Route: 048

REACTIONS (8)
  - Altered state of consciousness [Recovered/Resolved]
  - Pyrexia [Recovered/Resolved]
  - Disseminated intravascular coagulation [Unknown]
  - Tremor [Recovered/Resolved]
  - Liver disorder [Recovering/Resolving]
  - Malaise [Recovered/Resolved]
  - Dyskinesia [Recovered/Resolved]
  - Malignant neoplasm progression [Fatal]

NARRATIVE: CASE EVENT DATE: 20181220
